FAERS Safety Report 13496576 (Version 2)
Quarter: 2017Q2

REPORT INFORMATION
  Report Type: Spontaneous
  Country: US (occurrence: US)
  Receive Date: 20170428
  Receipt Date: 20170428
  Transmission Date: 20170830
  Serious: No
  Sender: FDA-Public Use
  Company Number: US-JAZZ-2017-US-003303

PATIENT
  Sex: Female

DRUGS (45)
  1. XYREM [Suspect]
     Active Substance: SODIUM OXYBATE
     Dosage: DOSE ADJUSTMENTS
     Route: 048
     Dates: start: 200902, end: 200912
  2. XANAX [Concomitant]
     Active Substance: ALPRAZOLAM
  3. DOCUSATE [Concomitant]
     Active Substance: DOCUSATE
  4. PLAQUENIL                          /00072602/ [Concomitant]
     Active Substance: HYDROXYCHLOROQUINE DIPHOSPHATE
  5. RITALIN [Concomitant]
     Active Substance: METHYLPHENIDATE HYDROCHLORIDE
  6. LEVONORGESTREL + ETINILESTRADIOL [Concomitant]
  7. ZETONNA [Concomitant]
     Active Substance: CICLESONIDE
  8. AMLODIPINE BESYLATE. [Concomitant]
     Active Substance: AMLODIPINE BESYLATE
  9. METHOTREXATE. [Concomitant]
     Active Substance: METHOTREXATE
  10. VICODIN [Concomitant]
     Active Substance: ACETAMINOPHEN\HYDROCODONE BITARTRATE
  11. VITAMIN E                          /00110501/ [Concomitant]
     Active Substance: TOCOPHEROL
  12. CELEBREX [Concomitant]
     Active Substance: CELECOXIB
  13. DAYTRANA [Concomitant]
     Active Substance: METHYLPHENIDATE
  14. ROXICET [Concomitant]
     Active Substance: ACETAMINOPHEN\OXYCODONE HYDROCHLORIDE
  15. SINGULAIR [Concomitant]
     Active Substance: MONTELUKAST SODIUM
  16. OXYMORPHONE HCL [Concomitant]
     Active Substance: OXYMORPHONE HYDROCHLORIDE
  17. NORTRIPTYLINE HCL [Concomitant]
     Active Substance: NORTRIPTYLINE HYDROCHLORIDE
  18. BENTYL [Concomitant]
     Active Substance: DICYCLOMINE HYDROCHLORIDE
  19. DEPAKOTE [Concomitant]
     Active Substance: DIVALPROEX SODIUM
  20. FLINTSTONES [Concomitant]
  21. IMURAN [Concomitant]
     Active Substance: AZATHIOPRINE
  22. LOESTRIN NOS [Concomitant]
     Active Substance: ETHINYL ESTRADIOL\NORETHINDRONE ACETATE
  23. NORCO [Concomitant]
     Active Substance: ACETAMINOPHEN\HYDROCODONE BITARTRATE
  24. OMEGA                              /00661201/ [Concomitant]
  25. WELLBUTRIN [Concomitant]
     Active Substance: BUPROPION HYDROCHLORIDE
  26. XYREM [Suspect]
     Active Substance: SODIUM OXYBATE
     Dosage: 5G, BID
     Route: 048
     Dates: start: 200912
  27. CELLCEPT [Concomitant]
     Active Substance: MYCOPHENOLATE MOFETIL\MYCOPHENOLATE MOFETIL HYDROCHLORIDE
  28. CALCIUM CITRATE [Concomitant]
     Active Substance: CALCIUM CITRATE
  29. COLESTIPOL HCL [Concomitant]
     Active Substance: COLESTIPOL HYDROCHLORIDE
  30. CYMBALTA [Concomitant]
     Active Substance: DULOXETINE HYDROCHLORIDE
  31. FOLIC ACID. [Concomitant]
     Active Substance: FOLIC ACID
  32. INDOMETHACIN                       /00003801/ [Concomitant]
     Active Substance: INDOMETHACIN
  33. KLONOPIN [Concomitant]
     Active Substance: CLONAZEPAM
  34. TRILEPTAL [Concomitant]
     Active Substance: OXCARBAZEPINE
  35. CYANOCOBALAMIN. [Concomitant]
     Active Substance: CYANOCOBALAMIN
  36. FLEXERIL [Concomitant]
     Active Substance: CYCLOBENZAPRINE HYDROCHLORIDE
  37. MVI                                /01825701/ [Concomitant]
     Active Substance: VITAMINS
  38. VITAMIN B COMPLEX [Concomitant]
     Active Substance: CYANOCOBALAMIN\DEXPANTHENOL\NIACINAMIDE\PYRIDOXINE HYDROCHLORIDE\RIBOFLAVIN 5^-PHOSPHATE SODIUM\THIAMINE HYDROCHLORIDE\VITAMIN B COMPLEX
  39. ZOLOFT [Suspect]
     Active Substance: SERTRALINE HYDROCHLORIDE
  40. XYREM [Suspect]
     Active Substance: SODIUM OXYBATE
     Indication: NARCOLEPSY
     Dosage: 2.25G, BID
     Route: 048
     Dates: start: 200901, end: 200902
  41. ETODOLAC. [Concomitant]
     Active Substance: ETODOLAC
  42. FLONASE                            /00908302/ [Concomitant]
     Active Substance: MOMETASONE FUROATE
  43. GEODON [Concomitant]
     Active Substance: ZIPRASIDONE HYDROCHLORIDE\ZIPRASIDONE MESYLATE
  44. PAMELOR [Concomitant]
     Active Substance: NORTRIPTYLINE HYDROCHLORIDE
  45. VITAMIN D3 [Concomitant]
     Active Substance: CHOLECALCIFEROL

REACTIONS (1)
  - Stress [Unknown]
